FAERS Safety Report 7983229-5 (Version None)
Quarter: 2011Q4

REPORT INFORMATION
  Report Type: 
  Country: None (occurrence: None)
  Receive Date: 20111215
  Receipt Date: 20111209
  Transmission Date: 20120403
  Serious: Yes (Hospitalization, Other)
  Sender: FDA-Public Use
  Company Number: BR-ABBOTT-11P-020-0882124-00

PATIENT
  Weight: 65 kg

DRUGS (1)
  1. HUMIRA [Suspect]
     Indication: RHEUMATOID ARTHRITIS
     Route: 058
     Dates: start: 20100301, end: 20110501

REACTIONS (11)
  - INJECTION SITE PAIN [None]
  - MALAISE [None]
  - PYREXIA [None]
  - WEIGHT DECREASED [None]
  - DECREASED APPETITE [None]
  - VOMITING [None]
  - TUBERCULOUS PLEURISY [None]
  - MUSCULOSKELETAL CHEST PAIN [None]
  - HOSPITALISATION [None]
  - CRYING [None]
  - INSOMNIA [None]
